FAERS Safety Report 4313614-4 (Version None)
Quarter: 2004Q1

REPORT INFORMATION
  Report Type: 
  Country: None (occurrence: None)
  Receive Date: 20040304
  Receipt Date: 20040213
  Transmission Date: 20041129
  Serious: Yes (Other)
  Sender: FDA-Public Use
  Company Number: USA040259452

PATIENT
  Age: 61 Year
  Sex: Female
  Weight: 73 kg

DRUGS (3)
  1. FORTEO [Suspect]
     Dates: start: 20031101
  2. LIPITOR [Concomitant]
  3. PREMARIN [Concomitant]

REACTIONS (2)
  - ACETABULUM FRACTURE [None]
  - IMPAIRED WORK ABILITY [None]
